FAERS Safety Report 22222294 (Version 1)
Quarter: 2023Q2

REPORT INFORMATION
  Report Type: Report from Study
  Country: US (occurrence: US)
  Receive Date: 20230418
  Receipt Date: 20230418
  Transmission Date: 20230722
  Serious: Yes (Other)
  Sender: FDA-Public Use
  Company Number: US-002147023-NVSC2023US086839

PATIENT
  Sex: Female

DRUGS (3)
  1. KISQALI FEMARA CO-PACK [Suspect]
     Active Substance: LETROZOLE\RIBOCICLIB
     Indication: Breast cancer female
     Dosage: 600 MG, QD FOR 21 DAYS
     Route: 048
     Dates: start: 202301
  2. KISQALI FEMARA CO-PACK [Suspect]
     Active Substance: LETROZOLE\RIBOCICLIB
     Dosage: 400 MG, QD FOR 21 DAYS
     Route: 048
  3. KISQALI FEMARA CO-PACK [Suspect]
     Active Substance: LETROZOLE\RIBOCICLIB
     Indication: Breast cancer female
     Dosage: UNK
     Route: 065
     Dates: start: 202301

REACTIONS (2)
  - Neutropenia [Recovering/Resolving]
  - Haemoglobin decreased [Recovering/Resolving]
